FAERS Safety Report 5346548-7 (Version None)
Quarter: 2007Q2

REPORT INFORMATION
  Report Type: 
  Country: None (occurrence: None)
  Receive Date: 20070430
  Receipt Date: 20070228
  Transmission Date: 20071010
  Serious: No
  Sender: FDA-Public Use
  Company Number: CLOF-10462

PATIENT
  Age: 4 Year
  Sex: Male

DRUGS (3)
  1. CLOLAR [Suspect]
     Indication: ACUTE LYMPHOCYTIC LEUKAEMIA
     Dosage: 36 MG/M2 QD IV
     Route: 042
     Dates: start: 20070212, end: 20070215
  2. SEPTRA [Concomitant]
  3. ACYCLOVIR [Concomitant]

REACTIONS (3)
  - PYREXIA [None]
  - RASH PRURITIC [None]
  - SKIN EXFOLIATION [None]
